FAERS Safety Report 15660125 (Version 1)
Quarter: 2018Q4

REPORT INFORMATION
  Report Type: Spontaneous
  Country: US (occurrence: US)
  Receive Date: 20181115
  Receipt Date: 20181115
  Transmission Date: 20190205
  Serious: No
  Sender: FDA-Public Use
  Company Number: None

PATIENT
  Age: 0 Day
  Sex: Male
  Weight: 2.37 kg

DRUGS (1)
  1. LENALIDOMIDE [Suspect]
     Active Substance: LENALIDOMIDE
     Indication: BONE CANCER

REACTIONS (3)
  - Exposure via father [None]
  - Maternal exposure during pregnancy [None]
  - Exposure via body fluid [None]

NARRATIVE: CASE EVENT DATE: 20181114
